FAERS Safety Report 19720466 (Version 1)
Quarter: 2021Q3

REPORT INFORMATION
  Report Type: Spontaneous
  Country: US (occurrence: US)
  Receive Date: 20210818
  Receipt Date: 20210818
  Transmission Date: 20211014
  Serious: Yes (Other)
  Sender: FDA-Public Use
  Company Number: US-AKCEA THERAPEUTICS, INC.-2021IS001482

PATIENT
  Age: 77 Year
  Sex: Female

DRUGS (2)
  1. ISSD (INTEGRATED SYRINGE SAFETY DEVICE) [Suspect]
     Active Substance: DEVICE
  2. TEGSEDI [Suspect]
     Active Substance: INOTERSEN SODIUM
     Indication: HEREDITARY NEUROPATHIC AMYLOIDOSIS
     Route: 058

REACTIONS (9)
  - Urine abnormality [Not Recovered/Not Resolved]
  - Proteinuria [Unknown]
  - Platelet count decreased [Not Recovered/Not Resolved]
  - Urine protein/creatinine ratio increased [Unknown]
  - Urinary casts [Not Recovered/Not Resolved]
  - Urine leukocyte esterase positive [Not Recovered/Not Resolved]
  - Bacterial test positive [Not Recovered/Not Resolved]
  - White blood cells urine positive [Not Recovered/Not Resolved]
  - Crystal urine present [Not Recovered/Not Resolved]
